FAERS Safety Report 8298204-3 (Version None)
Quarter: 2012Q2

REPORT INFORMATION
  Report Type: 
  Country: None (occurrence: None)
  Receive Date: 20120419
  Receipt Date: 20120305
  Transmission Date: 20120825
  Serious: No
  Sender: FDA-Public Use
  Company Number: US-BRISTOL-MYERS SQUIBB COMPANY-16432957

PATIENT
  Sex: Female

DRUGS (1)
  1. YERVOY [Suspect]
     Dosage: RECENT INFUSION ON 20-FEB-2012. NO OF INFUSIONS: 3

REACTIONS (2)
  - COUGH [None]
  - PYREXIA [None]
